FAERS Safety Report 9416545 (Version 1)
Quarter: 2013Q3

REPORT INFORMATION
  Report Type: Spontaneous
  Country: US (occurrence: US)
  Receive Date: 20130724
  Receipt Date: 20130724
  Transmission Date: 20140515
  Serious: Yes (Death, Life-Threatening)
  Sender: FDA-Public Use
  Company Number: US-ROXANE LABORATORIES, INC.-2013-RO-01194RO

PATIENT
  Age: 36 Year
  Sex: Male

DRUGS (10)
  1. BUPRENORPHINE HYDROCHLORIDE [Suspect]
  2. METHADONE [Suspect]
  3. MARIJUANA [Suspect]
  4. COCAINE [Suspect]
  5. PHENCYCLIDINE [Suspect]
  6. PROPOXYPHENE [Suspect]
  7. ALCOHOL [Suspect]
  8. AMPHETAMINES [Concomitant]
  9. BARBITUATES [Concomitant]
  10. BENZODIAZEPINES [Concomitant]

REACTIONS (2)
  - Drowning [Fatal]
  - Substance abuse [Unknown]
